FAERS Safety Report 25062032 (Version 1)
Quarter: 2025Q1

REPORT INFORMATION
  Report Type: Spontaneous
  Country: TR (occurrence: TR)
  Receive Date: 20250311
  Receipt Date: 20250311
  Transmission Date: 20250408
  Serious: No
  Sender: TOLMAR
  Company Number: TR-RECGATEWAY-2025001091

PATIENT
  Sex: Female

DRUGS (4)
  1. ELIGARD [Suspect]
     Active Substance: LEUPROLIDE ACETATE
     Indication: Occupational exposure to product
  2. ELIGARD [Suspect]
     Active Substance: LEUPROLIDE ACETATE
     Indication: Occupational exposure to product
     Dates: start: 20250211
  3. ELIGARD [Suspect]
     Active Substance: LEUPROLIDE ACETATE
     Dates: start: 20241023
  4. ELIGARD [Suspect]
     Active Substance: LEUPROLIDE ACETATE
     Indication: Occupational exposure to product

REACTIONS (3)
  - Occupational exposure to product [Unknown]
  - Intercepted product preparation error [Unknown]
  - Device leakage [Unknown]

NARRATIVE: CASE EVENT DATE: 20250211
